FAERS Safety Report 6835767-6 (Version None)
Quarter: 2010Q3

REPORT INFORMATION
  Report Type: 
  Country: None (occurrence: None)
  Receive Date: 20100713
  Receipt Date: 20100702
  Transmission Date: 20110219
  Serious: Yes (Hospitalization)
  Sender: FDA-Public Use
  Company Number: US-JNJFOC-20100701676

PATIENT
  Sex: Female

DRUGS (4)
  1. REMICADE [Suspect]
     Indication: RHEUMATOID ARTHRITIS
     Route: 042
  2. LIPITOR [Concomitant]
     Indication: BLOOD CHOLESTEROL INCREASED
  3. ASACOL [Concomitant]
     Indication: INFLAMMATORY BOWEL DISEASE
  4. TYLENOL-500 [Concomitant]
     Indication: PAIN

REACTIONS (9)
  - ANAEMIA [None]
  - CAROTID ARTERY DISEASE [None]
  - CAROTID ENDARTERECTOMY [None]
  - CORONARY ARTERY DISEASE [None]
  - LEUKAEMIA [None]
  - MYOCARDIAL INFARCTION [None]
  - PERIPHERAL ARTERIAL OCCLUSIVE DISEASE [None]
  - RENAL DISORDER [None]
  - URETERAL DISORDER [None]
